FAERS Safety Report 4621424-3 (Version None)
Quarter: 2005Q1

REPORT INFORMATION
  Report Type: 
  Country: None (occurrence: None)
  Receive Date: 20050321
  Receipt Date: 20050304
  Transmission Date: 20050727
  Serious: Yes (Other)
  Sender: FDA-Public Use
  Company Number: 602304

PATIENT
  Sex: Male

DRUGS (2)
  1. GAMMAGARD [Suspect]
     Indication: IMMUNODEFICIENCY CONGENITAL
     Dosage: INTRAVENOUS
     Route: 042
     Dates: start: 19880101, end: 19930101
  2. IMMUNOGLOBULIN HUMAN NORMAL (EFS) [Suspect]
     Indication: IMMUNODEFICIENCY CONGENITAL
     Dates: start: 19860101, end: 19880101

REACTIONS (2)
  - DRUG TOLERANCE [None]
  - HEPATITIS C [None]
